FAERS Safety Report 7115674-4 (Version None)
Quarter: 2010Q4

REPORT INFORMATION
  Report Type: 
  Country: None (occurrence: None)
  Receive Date: 20101122
  Receipt Date: 20101110
  Transmission Date: 20110411
  Serious: Yes (Hospitalization, Other)
  Sender: FDA-Public Use
  Company Number: PHHY2010ES76085

PATIENT
  Age: 35 Year
  Sex: Male

DRUGS (3)
  1. BASILIXIMAB [Suspect]
     Indication: TRANSPLANT
     Dosage: 20MG
  2. TACROLIMUS [Suspect]
     Indication: TRANSPLANT
  3. METHYLPREDNISOLONE [Suspect]
     Indication: TRANSPLANT

REACTIONS (14)
  - BLOOD CALCIUM DECREASED [None]
  - BLOOD CREATINE PHOSPHOKINASE INCREASED [None]
  - BLOOD DISORDER [None]
  - DILUTIONAL COAGULOPATHY [None]
  - ELECTROLYTE IMBALANCE [None]
  - ENTEROBACTER INFECTION [None]
  - HYPERKALAEMIA [None]
  - HYPOPHOSPHATAEMIA [None]
  - OLIGURIA [None]
  - RENAL IMPAIRMENT [None]
  - RHABDOMYOLYSIS [None]
  - SYSTEMIC INFLAMMATORY RESPONSE SYNDROME [None]
  - TRANSFUSION [None]
  - URINE COLOUR ABNORMAL [None]
